FAERS Safety Report 12208993 (Version 2)
Quarter: 2016Q4

REPORT INFORMATION
  Report Type: Spontaneous
  Country: US (occurrence: US)
  Receive Date: 20160324
  Receipt Date: 20161006
  Transmission Date: 20170207
  Serious: No
  Sender: FDA-Public Use
  Company Number: US-SHIONOGI, INC-2016000161

PATIENT
  Age: 36 Year
  Sex: Female
  Weight: 65.76 kg

DRUGS (3)
  1. PROGESTERONE. [Concomitant]
     Active Substance: PROGESTERONE
     Indication: PRODUCT USED FOR UNKNOWN INDICATION
     Dosage: 6%, 1 CLICK, BID
     Route: 061
  2. OSPHENA [Suspect]
     Active Substance: OSPEMIFENE
     Indication: DYSPAREUNIA
     Dosage: 60 MG, QD
     Route: 048
     Dates: start: 20141118, end: 20141216
  3. TESTOSTERONE. [Concomitant]
     Active Substance: TESTOSTERONE
     Indication: PRODUCT USED FOR UNKNOWN INDICATION
     Dosage: 0.1%, 1 CLICK, QD AM
     Route: 061

REACTIONS (2)
  - Breast enlargement [Recovered/Resolved]
  - Breast tenderness [Recovered/Resolved]

NARRATIVE: CASE EVENT DATE: 201411
